FAERS Safety Report 13319118 (Version 2)
Quarter: 2017Q4

REPORT INFORMATION
  Report Type: Spontaneous
  Country: US (occurrence: US)
  Receive Date: 20170309
  Receipt Date: 20171023
  Transmission Date: 20180320
  Serious: No
  Sender: FDA-Public Use
  Company Number: US-TEVA-746191ACC

PATIENT
  Age: 46 Year
  Sex: Female

DRUGS (15)
  1. SENOKOT-S [Concomitant]
     Active Substance: DOCUSATE SODIUM\SENNOSIDES
  2. CYCLOBENZAPRINE. [Concomitant]
     Active Substance: CYCLOBENZAPRINE
  3. HYDROCODONE [Concomitant]
     Active Substance: HYDROCODONE
  4. ASPIRIN. [Concomitant]
     Active Substance: ASPIRIN
  5. ATENOLOL. [Concomitant]
     Active Substance: ATENOLOL
  6. COPAXONE [Suspect]
     Active Substance: GLATIRAMER ACETATE
     Indication: MULTIPLE SCLEROSIS
     Route: 058
     Dates: start: 20160621
  7. VITAMIN D [Concomitant]
     Active Substance: CHOLECALCIFEROL
  8. ATORVASTATIN [Concomitant]
     Active Substance: ATORVASTATIN
  9. BACLOFEN. [Concomitant]
     Active Substance: BACLOFEN
  10. LISINOPRIL. [Concomitant]
     Active Substance: LISINOPRIL
  11. XANAX [Concomitant]
     Active Substance: ALPRAZOLAM
  12. VITAMIN E [Concomitant]
     Active Substance: .ALPHA.-TOCOPHEROL
  13. ESTRADIOL. [Concomitant]
     Active Substance: ESTRADIOL
  14. GABAPENTIN. [Concomitant]
     Active Substance: GABAPENTIN
  15. PAROXETINE. [Concomitant]
     Active Substance: PAROXETINE

REACTIONS (3)
  - Erythema [Unknown]
  - Incorrect dose administered [Unknown]
  - Injection site swelling [Unknown]

NARRATIVE: CASE EVENT DATE: 20170209
